FAERS Safety Report 25192621 (Version 1)
Quarter: 2025Q2

REPORT INFORMATION
  Report Type: Spontaneous
  Country: TR (occurrence: TR)
  Receive Date: 20250414
  Receipt Date: 20250414
  Transmission Date: 20250716
  Serious: Yes (Other)
  Sender: GILEAD
  Company Number: TR-GILEAD-2025-0709568

PATIENT
  Age: 51 Year
  Sex: Male

DRUGS (1)
  1. BIKTARVY [Suspect]
     Active Substance: BICTEGRAVIR SODIUM\EMTRICITABINE\TENOFOVIR ALAFENAMIDE FUMARATE
     Indication: HIV infection
     Route: 065
     Dates: start: 20240527, end: 20240610

REACTIONS (1)
  - Respiratory distress [Unknown]
